FAERS Safety Report 8950265 (Version 1)
Quarter: 2012Q4

REPORT INFORMATION
  Report Type: 
  Country: FR (occurrence: FR)
  Receive Date: 20121205
  Receipt Date: 20121205
  Transmission Date: 20130627
  Serious: Yes (Hospitalization)
  Sender: FDA-Public Use
  Company Number: PHHY2012FR108424

PATIENT
  Age: 76 Year
  Sex: Female

DRUGS (10)
  1. FEMARA [Suspect]
     Indication: BREAST CANCER
     Dosage: UNK
     Route: 048
     Dates: start: 20120330
  2. FOSAVANCE [Suspect]
     Indication: OSTEOPOROSIS PROPHYLAXIS
     Dosage: 1 DF, UNK
     Route: 048
     Dates: start: 20120412, end: 20120829
  3. SOTALOL [Concomitant]
     Indication: ARRHYTHMIA
     Dosage: UNK
     Route: 048
     Dates: end: 20120927
  4. CORDARONE [Concomitant]
     Indication: ARRHYTHMIA
     Dosage: 3 DF, QD
     Route: 048
     Dates: start: 20120927
  5. CORDARONE [Concomitant]
     Dosage: 2 DF, QD
     Route: 048
     Dates: start: 20120928
  6. CORDARONE [Concomitant]
     Dosage: 1 DF, UNK
     Route: 048
     Dates: start: 20120929
  7. RILMENIDINE [Concomitant]
     Indication: HYPERTENSION
     Route: 048
  8. APROVEL [Concomitant]
     Indication: HYPERTENSION
     Route: 048
  9. CRESTOR [Concomitant]
  10. PREVISCAN [Concomitant]

REACTIONS (4)
  - Left ventricular failure [Recovered/Resolved]
  - Atrial fibrillation [Recovered/Resolved]
  - Arrhythmia [Unknown]
  - Heart rate increased [Not Recovered/Not Resolved]
